FAERS Safety Report 7753978-2 (Version None)
Quarter: 2011Q3

REPORT INFORMATION
  Report Type: 
  Country: None (occurrence: None)
  Receive Date: 20110915
  Receipt Date: 20110906
  Transmission Date: 20111222
  Serious: Yes (Death, Hospitalization, Other)
  Sender: FDA-Public Use
  Company Number: US-ACTELION-A-NJ2011-45430

PATIENT

DRUGS (4)
  1. REVATIO [Concomitant]
  2. LASIX [Concomitant]
  3. CAPTOPRIL [Concomitant]
  4. TRACLEER [Suspect]
     Indication: PULMONARY ARTERIAL HYPERTENSION
     Dosage: UNK
     Route: 048
     Dates: start: 20081001, end: 20110101

REACTIONS (4)
  - OEDEMA PERIPHERAL [None]
  - CARDIAC FAILURE [None]
  - DEATH [None]
  - DYSPNOEA [None]
